FAERS Safety Report 9363396 (Version 3)
Quarter: 2013Q2

REPORT INFORMATION
  Report Type: Spontaneous
  Country: DE (occurrence: None)
  Receive Date: 20130620
  Receipt Date: 20130624
  Transmission Date: 20140414
  Serious: Yes (Death, Hospitalization)
  Sender: FDA-Public Use
  Company Number: 1306-785

PATIENT
  Age: 92 Year
  Sex: Male
  Weight: 40 kg

DRUGS (1)
  1. EYLEA [Suspect]
     Indication: MACULAR DEGENERATION
     Route: 031
     Dates: start: 20130315, end: 20130315

REACTIONS (3)
  - Marasmus [None]
  - Pneumonia [None]
  - Decreased appetite [None]
